FAERS Safety Report 20777815 (Version 2)
Quarter: 2022Q2

REPORT INFORMATION
  Report Type: Spontaneous
  Country: US (occurrence: FR)
  Receive Date: 20220503
  Receipt Date: 20220526
  Transmission Date: 20220721
  Serious: No
  Sender: FDA-Public Use
  Company Number: US-ADVANZ PHARMA-202203001578

PATIENT

DRUGS (8)
  1. HYDROXYCHLOROQUINE [Suspect]
     Active Substance: HYDROXYCHLOROQUINE
     Indication: Limb discomfort
     Dosage: UNK , PLAQUENIL
     Route: 058
  2. HYDROXYCHLOROQUINE [Suspect]
     Active Substance: HYDROXYCHLOROQUINE
     Indication: Musculoskeletal stiffness
  3. HYDROXYCHLOROQUINE [Suspect]
     Active Substance: HYDROXYCHLOROQUINE
     Indication: Arthralgia
  4. HUMIRA [Suspect]
     Active Substance: ADALIMUMAB
     Indication: Rheumatoid arthritis
     Dosage: UNK (CITRATE FREE)
     Route: 058
  5. HUMIRA [Suspect]
     Active Substance: ADALIMUMAB
     Indication: Ankylosing spondylitis
     Dosage: UNK (CITRATE FREE)
     Route: 058
  6. PFIZER BIONTECH COVID-19 VACCINE (TOZINAMERAN) [Concomitant]
     Indication: COVID-19 immunisation
     Dosage: 1ST DOSE (ONE IN 1 D)
     Route: 030
  7. PFIZER BIONTECH COVID-19 VACCINE (TOZINAMERAN) [Concomitant]
     Dosage: 2ND DOSE (ONE IN 1 D)
     Route: 030
  8. MODERNA COVID-19 VACCINE(ELASOMERAN) [Concomitant]
     Indication: COVID-19 immunisation
     Dosage: COVID BOOSTER (1 IN 1 D)
     Route: 030

REACTIONS (6)
  - Musculoskeletal stiffness [Unknown]
  - Limb discomfort [Recovered/Resolved]
  - Arthralgia [Recovered/Resolved]
  - Limb discomfort [Recovered/Resolved]
  - Flatulence [Recovered/Resolved]
  - Abdominal discomfort [Recovered/Resolved]

NARRATIVE: CASE EVENT DATE: 20220101
